FAERS Safety Report 19450401 (Version 2)
Quarter: 2021Q2

REPORT INFORMATION
  Report Type: Spontaneous
  Country: US (occurrence: US)
  Receive Date: 20210622
  Receipt Date: 20210629
  Transmission Date: 20210717
  Serious: No
  Sender: FDA-Public Use
  Company Number: US-009507513-2106USA003500

PATIENT
  Sex: Female

DRUGS (6)
  1. LENVIMA [Suspect]
     Active Substance: LENVATINIB
     Indication: ENDOMETRIAL CANCER
     Dosage: 20 MILLIGRAM, DAILY
     Dates: start: 20210602
  2. LENVIMA [Suspect]
     Active Substance: LENVATINIB
     Indication: METASTASES TO BONE
  3. ZOMETA [Suspect]
     Active Substance: ZOLEDRONIC ACID
     Indication: METASTASES TO BONE
  4. KEYTRUDA [Suspect]
     Active Substance: PEMBROLIZUMAB
     Indication: METASTASES TO BONE
  5. KEYTRUDA [Suspect]
     Active Substance: PEMBROLIZUMAB
     Indication: ENDOMETRIAL CANCER
     Dosage: UNK
     Dates: start: 202106
  6. ZOMETA [Suspect]
     Active Substance: ZOLEDRONIC ACID
     Indication: ENDOMETRIAL CANCER
     Dosage: UNK
     Dates: start: 202106

REACTIONS (6)
  - Weight decreased [Unknown]
  - Abdominal distension [Unknown]
  - Hypertension [Unknown]
  - Fatigue [Unknown]
  - Depression [Unknown]
  - Sleep disorder [Unknown]

NARRATIVE: CASE EVENT DATE: 202106
